FAERS Safety Report 8033619-X (Version None)
Quarter: 2012Q1

REPORT INFORMATION
  Report Type: 
  Country: None (occurrence: None)
  Receive Date: 20120110
  Receipt Date: 20120109
  Transmission Date: 20120608
  Serious: Yes (Hospitalization, Disabling, Other)
  Sender: FDA-Public Use
  Company Number: BR-ROCHE-745674

PATIENT
  Sex: Female
  Weight: 40 kg

DRUGS (23)
  1. LYRICA [Concomitant]
  2. PANTOPRAZOLE [Concomitant]
  3. ACTONEL [Concomitant]
     Indication: OSTEOPENIA
  4. BUPRENORPHINE [Concomitant]
  5. FOLIC ACID [Concomitant]
  6. PRELONE [Concomitant]
  7. CYCLOPHOSPHAMIDE [Concomitant]
  8. MABTHERA [Suspect]
     Indication: SYSTEMIC LUPUS ERYTHEMATOSUS
     Dosage: FORM INFUSION
     Route: 065
     Dates: start: 20100701, end: 20100801
  9. AMITRIPTYLINE HCL [Concomitant]
  10. OMEPRAZOLE [Concomitant]
  11. CALCORT [Concomitant]
  12. ASPIRIN [Concomitant]
  13. BUP-4 [Concomitant]
  14. BAMIFIX [Concomitant]
  15. AZATHIOPRINE [Concomitant]
  16. CITONEURIN [Concomitant]
     Dosage: DOSE: 5000
  17. CYCLOSPORINE [Concomitant]
  18. SIMVASTATIN [Concomitant]
  19. ENOXAPARIN SODIUM [Concomitant]
  20. NEXIUM [Concomitant]
  21. BACLOFEN [Concomitant]
     Indication: MUSCLE SPASMS
     Dosage: MUSCULAR RELAXANT DUE TO MUSCULAR SPASMS, DRUG REPORTED AS BACLOFENO
  22. NOOTROPIL [Concomitant]
  23. PARSITAN [Concomitant]

REACTIONS (14)
  - OESOPHAGITIS [None]
  - GASTRITIS [None]
  - CEREBROVASCULAR ACCIDENT [None]
  - APHASIA [None]
  - DYSPHAGIA [None]
  - RESPIRATORY PARALYSIS [None]
  - WOUND [None]
  - AGEUSIA [None]
  - RESPIRATORY FAILURE [None]
  - DUODENAL ULCER [None]
  - HEMIPLEGIA [None]
  - SYSTEMIC LUPUS ERYTHEMATOSUS [None]
  - GASTRIC DISORDER [None]
  - URINARY TRACT DISORDER [None]
